FAERS Safety Report 9324817 (Version 4)
Quarter: 2013Q3

REPORT INFORMATION
  Report Type: Spontaneous
  Country: US (occurrence: US)
  Receive Date: 20130603
  Receipt Date: 20130710
  Transmission Date: 20140515
  Serious: No
  Sender: FDA-Public Use
  Company Number: US-PFIZER INC-2013164437

PATIENT
  Age: 39 Year
  Sex: Female
  Weight: 77.1 kg

DRUGS (7)
  1. METAXALONE [Suspect]
     Indication: MUSCLE TIGHTNESS
     Dosage: 800 MG, 3X/DAY
     Route: 048
  2. METAXALONE [Suspect]
     Dosage: 800 MG, 2X/DAY
     Route: 048
     Dates: start: 20130516, end: 20130517
  3. LIDODERM [Concomitant]
     Dosage: 1 DF, 1X/DAY
     Route: 061
     Dates: start: 20130520
  4. LOW-OGESTREL [Concomitant]
     Dosage: UNK, 1X/DAY
     Dates: start: 201208
  5. CLARITIN [Concomitant]
     Dosage: UNK, AS NEEDED
  6. B-50 [Concomitant]
     Dosage: UNK
  7. CALCIUM MAGNESIUM ZINC [Concomitant]
     Dosage: UNK

REACTIONS (3)
  - Drug ineffective [Unknown]
  - Muscle spasms [Recovered/Resolved]
  - Pain in extremity [Recovered/Resolved]
